FAERS Safety Report 8412711-1 (Version None)
Quarter: 2012Q2

REPORT INFORMATION
  Report Type: 
  Country: None (occurrence: None)
  Receive Date: 20120605
  Receipt Date: 20120524
  Transmission Date: 20120825
  Serious: No
  Sender: FDA-Public Use
  Company Number: US-B.I. PHARMACEUTICALS,INC./RIDGEFIELD-2012-BP-11517BP

PATIENT
  Age: 55 Year
  Sex: Male

DRUGS (3)
  1. MICARDIS [Suspect]
     Indication: HYPERTENSION
     Route: 048
     Dates: start: 20060101, end: 20120510
  2. MICARDIS [Suspect]
     Route: 048
  3. PEPCID [Concomitant]
     Indication: DYSPEPSIA

REACTIONS (11)
  - ARTHRALGIA [None]
  - MYALGIA [None]
  - DIZZINESS [None]
  - VISUAL IMPAIRMENT [None]
  - NOCTURIA [None]
  - RASH [None]
  - SOMNOLENCE [None]
  - CHILLS [None]
  - HYPERHIDROSIS [None]
  - DIARRHOEA [None]
  - SYNCOPE [None]
